FAERS Safety Report 19428571 (Version 1)
Quarter: 2021Q2

REPORT INFORMATION
  Report Type: Spontaneous
  Country: US (occurrence: US)
  Receive Date: 20210616
  Receipt Date: 20210616
  Transmission Date: 20210717
  Serious: No
  Sender: FDA-Public Use
  Company Number: US-AMGEN-USASP2021092833

PATIENT
  Age: 43 Year
  Sex: Male

DRUGS (3)
  1. MVASI [Suspect]
     Active Substance: BEVACIZUMAB-AWWB
     Indication: LUNG CANCER METASTATIC
     Dosage: 375 MILLIGRAM
     Route: 065
     Dates: start: 20200103
  2. MVASI [Suspect]
     Active Substance: BEVACIZUMAB-AWWB
     Indication: METASTASES TO LIVER
  3. FOLFIRI [Concomitant]
     Active Substance: FLUOROURACIL\IRINOTECAN\LEUCOVORIN
     Dosage: UNK
     Dates: start: 20190324

REACTIONS (1)
  - Malaise [Unknown]

NARRATIVE: CASE EVENT DATE: 202105
